FAERS Safety Report 22532779 (Version 1)
Quarter: 2023Q2

REPORT INFORMATION
  Report Type: Spontaneous
  Country: CA (occurrence: CA)
  Receive Date: 20230607
  Receipt Date: 20230607
  Transmission Date: 20230722
  Serious: Yes (Death, Hospitalization, Other)
  Sender: FDA-Public Use
  Company Number: CA-NOVPHSZ-PHHY2019CA203800

PATIENT
  Age: 95 Year
  Sex: Male

DRUGS (3)
  1. BUTYLSCOPOLAMINE BROMIDE [Suspect]
     Active Substance: BUTYLSCOPOLAMINE BROMIDE
     Indication: Dyspnoea
     Dosage: 20 MG, BID (20 MG IN AM AND 20 MG IN PM)
     Route: 051
     Dates: start: 20161227
  2. BUTYLSCOPOLAMINE BROMIDE [Suspect]
     Active Substance: BUTYLSCOPOLAMINE BROMIDE
     Indication: Dyspnoea
     Dosage: 10 MG, UNK
     Route: 048
     Dates: start: 201609
  3. BUTYLSCOPOLAMINE BROMIDE [Suspect]
     Active Substance: BUTYLSCOPOLAMINE BROMIDE
     Dosage: 20 MG, BID (10MG AM AND 10MG AS NEEDED PM)
     Route: 048

REACTIONS (15)
  - Respiratory distress [Fatal]
  - Cardiac disorder [Unknown]
  - Loss of consciousness [Unknown]
  - Blood glucose increased [Unknown]
  - Peripheral swelling [Unknown]
  - Dyspnoea [Recovered/Resolved]
  - Condition aggravated [Unknown]
  - Dyspnoea [Not Recovered/Not Resolved]
  - Pain in extremity [Unknown]
  - Asthenia [Unknown]
  - Pain [Unknown]
  - Peripheral swelling [Unknown]
  - Blood pressure decreased [Unknown]
  - Pruritus [Unknown]
  - Drug ineffective for unapproved indication [Unknown]

NARRATIVE: CASE EVENT DATE: 20161229
